FAERS Safety Report 4531561-X (Version None)
Quarter: 2004Q4

REPORT INFORMATION
  Report Type: 
  Country: None (occurrence: None)
  Receive Date: 20041220
  Receipt Date: 20041210
  Transmission Date: 20050328
  Serious: Yes (Hospitalization)
  Sender: FDA-Public Use
  Company Number: FR-BRISTOL-MYERS SQUIBB COMPANY-12796850

PATIENT
  Age: 72 Year
  Sex: Female

DRUGS (5)
  1. GLUCOPHAGE [Suspect]
     Dosage: 3-4 TABLETS DAILY
     Route: 048
  2. STAGID [Suspect]
     Route: 048
     Dates: start: 20040315, end: 20040928
  3. TENORMIN [Concomitant]
     Route: 048
  4. FORTZAAR [Concomitant]
     Route: 048
  5. ACTONEL [Concomitant]
     Route: 048

REACTIONS (6)
  - CONDITION AGGRAVATED [None]
  - DIARRHOEA [None]
  - DIVERTICULUM INTESTINAL [None]
  - FLUSHING [None]
  - HYPOKALAEMIA [None]
  - PALPITATIONS [None]
